FAERS Safety Report 13686816 (Version 1)
Quarter: 2017Q2

REPORT INFORMATION
  Report Type: Report from Study
  Country: AR (occurrence: AR)
  Receive Date: 20170623
  Receipt Date: 20170623
  Transmission Date: 20170830
  Serious: Yes (Life-Threatening, Hospitalization, Other)
  Sender: FDA-Public Use
  Company Number: AR-ELI_LILLY_AND_COMPANY-AR201706009186

PATIENT
  Age: 61 Year
  Sex: Male

DRUGS (1)
  1. CETUXIMAB. [Suspect]
     Active Substance: CETUXIMAB
     Indication: SQUAMOUS CELL CARCINOMA OF HEAD AND NECK
     Dosage: 500 MG (100 ML), UNKNOWN
     Route: 065

REACTIONS (6)
  - Decreased appetite [Unknown]
  - General physical health deterioration [Unknown]
  - Immunodeficiency [Unknown]
  - Pneumonia [Unknown]
  - Pain [Unknown]
  - Underweight [Unknown]

NARRATIVE: CASE EVENT DATE: 20170605
